FAERS Safety Report 24530390 (Version 1)
Quarter: 2024Q4

REPORT INFORMATION
  Report Type: Spontaneous
  Country: ES (occurrence: ES)
  Receive Date: 20241021
  Receipt Date: 20241021
  Transmission Date: 20250115
  Serious: Yes (Other)
  Sender: CLINIGEN
  Company Number: None

PATIENT
  Age: 53 Year
  Sex: Female
  Weight: 98.7 kg

DRUGS (1)
  1. FOSCARNET SODIUM [Suspect]
     Active Substance: FOSCARNET SODIUM
     Indication: Cytomegalovirus infection
     Dosage: 5940 MILLIGRAM 12 HRS
     Route: 042
     Dates: start: 20240829, end: 20240906

REACTIONS (3)
  - Tubulointerstitial nephritis [Recovered/Resolved]
  - Hypomagnesaemia [Recovered/Resolved]
  - Hypokalaemia [Recovered/Resolved]

NARRATIVE: CASE EVENT DATE: 20240830
